FAERS Safety Report 4515677-X (Version None)
Quarter: 2004Q4

REPORT INFORMATION
  Report Type: 
  Country: None (occurrence: None)
  Receive Date: 20040930
  Receipt Date: 20040825
  Transmission Date: 20050328
  Serious: No
  Sender: FDA-Public Use
  Company Number: USA-2004-0016567

PATIENT
  Age: 17 Year
  Sex: Female

DRUGS (1)
  1. SPECTRACEF [Suspect]
     Indication: TONSILLITIS
     Dosage: 400 MG, DAILY
     Dates: start: 20040823

REACTIONS (1)
  - RECTAL HAEMORRHAGE [None]
